FAERS Safety Report 8300070-4 (Version None)
Quarter: 2012Q2

REPORT INFORMATION
  Report Type: 
  Country: None (occurrence: None)
  Receive Date: 20120420
  Receipt Date: 20120416
  Transmission Date: 20120825
  Serious: No
  Sender: FDA-Public Use
  Company Number: US-PFIZER INC-2012068040

PATIENT
  Sex: Male

DRUGS (20)
  1. ZYRTEC [Suspect]
     Dosage: 10 MG
  2. PRAVACHOL [Concomitant]
     Dosage: 40 MG
  3. ACCURETIC [Suspect]
     Dosage: 20-12.5 MG PER TABLET
  4. FLEXERIL [Concomitant]
     Dosage: 10 MG
  5. ROFLUMILAST [Concomitant]
     Dosage: 500 MCG
  6. HYDRODIURIL [Concomitant]
     Dosage: 25 MG
  7. ACTOS [Concomitant]
     Dosage: 45 MG
  8. SPIRIVA [Suspect]
  9. ELAVIL [Concomitant]
     Dosage: 50 MG
  10. GLUCOPHAGE [Concomitant]
     Dosage: 1000 MG
  11. TENORMIN [Concomitant]
     Dosage: 50 MG
  12. VICODIN [Concomitant]
     Dosage: 5-500 MG PER TABLET
  13. IBUPROFEN (ADVIL) [Concomitant]
     Dosage: 800 MG
  14. VENTOLIN [Concomitant]
     Dosage: 90 MCG/ACTUATION INHALER
  15. VITAMIN B-12 [Concomitant]
     Dosage: 2500 MCG
     Route: 060
  16. LIPITOR [Suspect]
     Dosage: 40 MG
  17. POTASSIUM CHLORIDE [Concomitant]
     Dosage: 20 MEQ
  18. SITAGLIPTIN AND METFORMIN HYDROCHLORIDE [Concomitant]
     Dosage: 50-1000 MG PER
  19. LYRICA [Suspect]
     Dosage: 100 MG
  20. VASOTEC [Concomitant]
     Dosage: 20 MG

REACTIONS (1)
  - NO ADVERSE EVENT [None]
